FAERS Safety Report 7305514-2 (Version None)
Quarter: 2011Q1

REPORT INFORMATION
  Report Type: 
  Country: None (occurrence: None)
  Receive Date: 20110222
  Receipt Date: 20110214
  Transmission Date: 20110831
  Serious: Yes (Hospitalization)
  Sender: FDA-Public Use
  Company Number: US-PFIZER INC-2011026323

PATIENT
  Sex: Female

DRUGS (1)
  1. ROBITUSSIN DM [Suspect]
     Dosage: UNK
     Route: 048

REACTIONS (3)
  - SNEEZING [None]
  - PRURITUS GENERALISED [None]
  - EPISTAXIS [None]
